FAERS Safety Report 8151679-2 (Version None)
Quarter: 2012Q1

REPORT INFORMATION
  Report Type: 
  Country: None (occurrence: None)
  Receive Date: 20120221
  Receipt Date: 20120207
  Transmission Date: 20120608
  Serious: Yes (Other)
  Sender: FDA-Public Use
  Company Number: BR-AMGEN-BRASP2012002541

PATIENT
  Age: 54 Year
  Sex: Female
  Weight: 51.8 kg

DRUGS (6)
  1. LEVOTHYROXINE SODIUM [Concomitant]
     Dosage: 88 MG, 1X/DAY
  2. ENBREL [Suspect]
     Dosage: 25 MG, 2 TIMES/WK
     Route: 058
     Dates: end: 20110101
  3. NEO FOLICO [Concomitant]
     Dosage: ONE TABLET, ONCE WEEKLY
  4. CORTICOSTEROIDS [Concomitant]
     Dosage: 5 MG, ONCE DAILY
  5. ENBREL [Suspect]
     Indication: RHEUMATOID ARTHRITIS
     Dosage: 50 MG, ONCE WEEKLY
     Route: 058
     Dates: start: 20100601
  6. TECNOMET                           /00113801/ [Concomitant]
     Dosage: 12 MG, ONCE WEEKLY

REACTIONS (5)
  - IMMUNE SYSTEM DISORDER [None]
  - CHOLELITHIASIS [None]
  - INFLUENZA [None]
  - PHARYNGITIS [None]
  - LIVER DISORDER [None]
